FAERS Safety Report 12288290 (Version 1)
Quarter: 2016Q2

REPORT INFORMATION
  Report Type: Report from Study
  Country: RO (occurrence: RO)
  Receive Date: 20160420
  Receipt Date: 20160420
  Transmission Date: 20160815
  Serious: Yes (Hospitalization)
  Sender: FDA-Public Use
  Company Number: RO-KADMON PHARMACEUTICALS, LLC-KAD201604-001485

PATIENT
  Age: 60 Year
  Sex: Female

DRUGS (9)
  1. EXVIERA [Suspect]
     Active Substance: DASABUVIR
     Indication: HEPATIC CIRRHOSIS
  2. GLUCOSE 5 % [Concomitant]
     Dosage: INTRAVENOUS INFUSION
     Dates: start: 20160408
  3. ASPATOFORT (ASPARTOFORT) [Concomitant]
     Dosage: INTRAVENOUS INFUSION
     Dates: start: 20160408
  4. VIEKIRAX [Suspect]
     Active Substance: OMBITASVIR\PARITAPREVIR\RITONAVIR
     Indication: HEPATITIS C
     Dosage: FILM-COATED TABLET
     Route: 048
     Dates: start: 20160309
  5. VIEKIRAX [Suspect]
     Active Substance: OMBITASVIR\PARITAPREVIR\RITONAVIR
     Indication: HEPATIC CIRRHOSIS
  6. AMINOSTERIL N-HEPA (AMINOSTERIL N) [Concomitant]
     Dosage: INTRAVENOUS INFUSION
     Dates: start: 20160408
  7. RIBAVIRIN. [Suspect]
     Active Substance: RIBAVIRIN
     Indication: HEPATIC CIRRHOSIS
  8. EXVIERA [Suspect]
     Active Substance: DASABUVIR
     Indication: HEPATITIS C
     Dosage: FILM-COATED TABLET, IN THE MORNING AND IN THE EVENING
     Route: 048
     Dates: start: 20160309
  9. RIBAVIRIN. [Suspect]
     Active Substance: RIBAVIRIN
     Indication: HEPATITIS C
     Dosage: FILM-COATED TABLET
     Route: 048
     Dates: start: 20160309

REACTIONS (1)
  - Cell death [Unknown]

NARRATIVE: CASE EVENT DATE: 20160329
